FAERS Safety Report 6069075-0 (Version None)
Quarter: 2009Q1

REPORT INFORMATION
  Report Type: 
  Country: None (occurrence: None)
  Receive Date: 20090206
  Receipt Date: 20090123
  Transmission Date: 20090719
  Serious: Yes (Other)
  Sender: FDA-Public Use
  Company Number: US-ELI_LILLY_AND_COMPANY-US200901004234

PATIENT
  Age: 54 Year
  Sex: Female

DRUGS (1)
  1. EVISTA [Suspect]
     Indication: OSTEOPENIA
     Dosage: 60 MG, DAILY (1/D)
     Route: 065
     Dates: start: 20090102

REACTIONS (1)
  - EMBOLIC STROKE [None]
